FAERS Safety Report 23096472 (Version 1)
Quarter: 2023Q4

REPORT INFORMATION
  Report Type: Spontaneous
  Country: US (occurrence: None)
  Receive Date: 20231022
  Receipt Date: 20231022
  Transmission Date: 20240109
  Serious: Yes (Other)
  Sender: FDA-Public Use
  Company Number: None

PATIENT
  Age: 73 Year
  Sex: Male
  Weight: 91.8 kg

DRUGS (5)
  1. FINASTERIDE [Suspect]
     Active Substance: FINASTERIDE
     Indication: Prostatomegaly
     Dosage: OTHER QUANTITY : 1 TABLET(S);?FREQUENCY : DAILY;?
     Route: 048
     Dates: start: 20230909, end: 20230922
  2. PANTOPRAZOLE [Concomitant]
     Active Substance: PANTOPRAZOLE
  3. PRAVASTATIN [Concomitant]
     Active Substance: PRAVASTATIN
  4. DILTIAZEM [Concomitant]
     Active Substance: DILTIAZEM
  5. BENEFIBER [Concomitant]
     Active Substance: STARCH, WHEAT

REACTIONS (7)
  - Joint stiffness [None]
  - Musculoskeletal stiffness [None]
  - Arthralgia [None]
  - Arthralgia [None]
  - Pain in extremity [None]
  - Joint lock [None]
  - Myalgia [None]

NARRATIVE: CASE EVENT DATE: 20230915
